FAERS Safety Report 9183616 (Version 6)
Quarter: 2014Q3

REPORT INFORMATION
  Report Type: Spontaneous
  Country: US (occurrence: US)
  Receive Date: 20130322
  Receipt Date: 20140718
  Transmission Date: 20150326
  Serious: Yes (Hospitalization, Other)
  Sender: FDA-Public Use
  Company Number: US-ROCHE-1204620

PATIENT
  Age: 54 Year
  Sex: Female

DRUGS (1)
  1. XOLAIR [Suspect]
     Active Substance: OMALIZUMAB
     Indication: ASTHMA
     Dosage: LAST DOSE PRIOR TO SAE WAS ON 20/DEC/2010
     Route: 058
     Dates: start: 2008

REACTIONS (4)
  - Cardiac disorder [Unknown]
  - T-cell lymphoma stage II [Recovered/Resolved]
  - Myocardial infarction [Unknown]
  - Exposure during pregnancy [Unknown]

NARRATIVE: CASE EVENT DATE: 201108
